FAERS Safety Report 7183115-7 (Version None)
Quarter: 2010Q4

REPORT INFORMATION
  Report Type: 
  Country: None (occurrence: None)
  Receive Date: 20101208
  Receipt Date: 20101122
  Transmission Date: 20110411
  Serious: Yes (Death)
  Sender: FDA-Public Use
  Company Number: 2010005132

PATIENT
  Age: 74 Year
  Sex: Male

DRUGS (3)
  1. ERLOTINIB HYDROCHLORIDE [Suspect]
     Indication: LUNG NEOPLASM MALIGNANT
     Dosage: ORAL
     Route: 048
     Dates: start: 20101001, end: 20101108
  2. ASAPHEN (ACETYLSALICYLIC ACID) [Concomitant]
  3. LIPITOR [Concomitant]

REACTIONS (1)
  - DEATH [None]
